FAERS Safety Report 19728506 (Version 2)
Quarter: 2021Q3

REPORT INFORMATION
  Report Type: Spontaneous
  Country: NL (occurrence: NL)
  Receive Date: 20210820
  Receipt Date: 20210826
  Transmission Date: 20211014
  Serious: Yes (Life-Threatening)
  Sender: FDA-Public Use
  Company Number: NL-PFIZER INC-202101052394

PATIENT
  Age: 59 Year
  Sex: Male
  Weight: 71.6 kg

DRUGS (8)
  1. CETOMACROGOL [Concomitant]
     Active Substance: COSMETICS
  2. FRESUBIN ENERGY [CAFFEINE;CARBOHYDRATES NOS;CHOLINE;FATS NOS;MINERALS [Concomitant]
  3. PARACETAMOL [Concomitant]
     Active Substance: ACETAMINOPHEN
  4. PANTOPRAZOL [PANTOPRAZOLE] [Concomitant]
     Active Substance: PANTOPRAZOLE
  5. OXYCODON [Concomitant]
     Active Substance: OXYCODONE
  6. LACTULOSE. [Concomitant]
     Active Substance: LACTULOSE
  7. SUNITINIB MALATE. [Suspect]
     Active Substance: SUNITINIB MALATE
     Indication: COLON CANCER METASTATIC
     Dosage: 25 MG (1 DF), EVERY TWO WEEKS
     Dates: start: 20210611, end: 20210722
  8. METOCLOPRAMIDE. [Concomitant]
     Active Substance: METOCLOPRAMIDE

REACTIONS (4)
  - Gastrooesophageal reflux disease [Unknown]
  - Off label use [Unknown]
  - Hyperammonaemic encephalopathy [Recovered/Resolved]
  - Melaena [Recovered/Resolved]

NARRATIVE: CASE EVENT DATE: 20210611
